FAERS Safety Report 14803275 (Version 2)
Quarter: 2018Q2

REPORT INFORMATION
  Report Type: Report from Study
  Country: GB (occurrence: GB)
  Receive Date: 20180425
  Receipt Date: 20180607
  Transmission Date: 20180711
  Serious: Yes (Hospitalization, Other)
  Sender: FDA-Public Use
  Company Number: GB-BRISTOL-MYERS SQUIBB COMPANY-BMS-2018-000613

PATIENT
  Sex: Female

DRUGS (2)
  1. THYROXIN [Concomitant]
     Active Substance: LEVOTHYROXINE
     Indication: PRODUCT USED FOR UNKNOWN INDICATION
     Route: 065
  2. ABATACEPT [Suspect]
     Active Substance: ABATACEPT
     Indication: RHEUMATOID ARTHRITIS
     Dosage: 125 MG, QWK
     Route: 058
     Dates: start: 20170714, end: 20180329

REACTIONS (10)
  - Pulmonary oedema [Unknown]
  - Pyrexia [Unknown]
  - Pain [Unknown]
  - Sepsis [Unknown]
  - Inflammation [Unknown]
  - Hypoaesthesia [Unknown]
  - Pneumonia [Unknown]
  - Immune system disorder [Unknown]
  - Drug ineffective [Unknown]
  - Paraesthesia [Unknown]
